FAERS Safety Report 6688460-7 (Version None)
Quarter: 2010Q2

REPORT INFORMATION
  Report Type: 
  Country: None (occurrence: None)
  Receive Date: 20100420
  Receipt Date: 20100409
  Transmission Date: 20101027
  Serious: Yes (Other)
  Sender: FDA-Public Use
  Company Number: CA-AMGEN-KDL402505

PATIENT
  Sex: Male

DRUGS (5)
  1. ENBREL [Suspect]
     Indication: PSORIATIC ARTHROPATHY
     Dates: start: 20100320
  2. LOSEC [Concomitant]
  3. ADVIL [Concomitant]
  4. TYLENOL-500 [Concomitant]
  5. SYMBICORT [Concomitant]

REACTIONS (12)
  - ANXIETY [None]
  - APTYALISM [None]
  - DIZZINESS [None]
  - DRY MOUTH [None]
  - DRY THROAT [None]
  - DYSGEUSIA [None]
  - HEADACHE [None]
  - NAUSEA [None]
  - PARAESTHESIA [None]
  - PHARYNGEAL HYPOAESTHESIA [None]
  - SWOLLEN TONGUE [None]
  - TONGUE ULCERATION [None]
